FAERS Safety Report 18932277 (Version 1)
Quarter: 2021Q1

REPORT INFORMATION
  Report Type: Spontaneous
  Country: US (occurrence: US)
  Receive Date: 20210224
  Receipt Date: 20210224
  Transmission Date: 20210420
  Serious: No
  Sender: FDA-Public Use
  Company Number: US-TEVA-2021-US-1884143

PATIENT

DRUGS (1)
  1. TAMOXIFEN TEVA [Suspect]
     Active Substance: TAMOXIFEN
     Route: 065

REACTIONS (2)
  - Headache [Unknown]
  - Nausea [Unknown]
